FAERS Safety Report 5046864-2 (Version None)
Quarter: 2006Q3

REPORT INFORMATION
  Report Type: 
  Country: None (occurrence: None)
  Receive Date: 20060705
  Receipt Date: 20060705
  Transmission Date: 20061208
  Serious: Yes (Life-Threatening, Hospitalization, Other)
  Sender: FDA-Public Use
  Company Number: None

PATIENT
  Sex: Female
  Weight: 61.2356 kg

DRUGS (2)
  1. MINOCYCLINE HCL [Suspect]
     Indication: ACNE
     Dosage: TWO PILLS DAILY  PO
     Route: 048
     Dates: start: 20040401, end: 20041028
  2. MINOCYCLINE HCL [Suspect]
     Indication: PROPHYLAXIS
     Dosage: TWO PILLS DAILY  PO
     Route: 048
     Dates: start: 20040401, end: 20041028

REACTIONS (2)
  - EOSINOPHILIC PNEUMONIA [None]
  - HEART RATE INCREASED [None]
